FAERS Safety Report 24183421 (Version 1)
Quarter: 2024Q3

REPORT INFORMATION
  Report Type: Spontaneous
  Country: US (occurrence: US)
  Receive Date: 20240807
  Receipt Date: 20240807
  Transmission Date: 20241017
  Serious: Yes (Hospitalization, Other)
  Sender: NOVARTIS
  Company Number: US-SANDOZ-SDZ2023US067964

PATIENT
  Age: 83 Year
  Sex: Female

DRUGS (4)
  1. PEMETREXED [Suspect]
     Active Substance: PEMETREXED
     Indication: Product used for unknown indication
     Dosage: UNK
     Route: 065
  2. CARBOPLATIN [Suspect]
     Active Substance: CARBOPLATIN
     Indication: Product used for unknown indication
     Dosage: UNK
     Route: 065
  3. CANAKINUMAB [Suspect]
     Active Substance: CANAKINUMAB
     Indication: Product used for unknown indication
     Dosage: UNK
     Route: 065
  4. DURVALUMAB [Suspect]
     Active Substance: DURVALUMAB
     Indication: Product used for unknown indication
     Dosage: UNK
     Route: 065

REACTIONS (1)
  - Pneumonia [Unknown]
